FAERS Safety Report 9525639 (Version 1)
Quarter: 2013Q3

REPORT INFORMATION
  Report Type: Spontaneous
  Country: US (occurrence: US)
  Receive Date: 20130915
  Receipt Date: 20130915
  Transmission Date: 20140515
  Serious: Yes (Other)
  Sender: FDA-Public Use
  Company Number: US-RB-058359-13

PATIENT
  Age: 0 None
  Sex: Female

DRUGS (5)
  1. SUBOXONE TABLET [Suspect]
     Indication: DRUG DEPENDENCE
     Route: 064
     Dates: start: 201108, end: 201109
  2. BUPRENORPHINE GENERIC [Suspect]
     Indication: DRUG DEPENDENCE
     Route: 064
     Dates: start: 201109, end: 20120409
  3. BUPRENORPHINE GENERIC [Suspect]
     Route: 063
     Dates: start: 20120409, end: 2012
  4. NICOTINE [Suspect]
     Dosage: 5-6 CIGARETTES DAILY
     Route: 064
     Dates: start: 201108, end: 20120409
  5. NICOTINE [Suspect]
     Indication: NICOTINE DEPENDENCE
     Dosage: 5-6 CIGARETTES DAILY
     Route: 063
     Dates: start: 20120409, end: 2012

REACTIONS (3)
  - Foetal exposure during pregnancy [Recovered/Resolved]
  - Premature baby [Recovered/Resolved]
  - Exposure during breast feeding [Recovered/Resolved]
